FAERS Safety Report 7016372-8 (Version None)
Quarter: 2010Q3

REPORT INFORMATION
  Report Type: 
  Country: None (occurrence: None)
  Receive Date: 20100927
  Receipt Date: 20100916
  Transmission Date: 20110219
  Serious: Yes (Hospitalization)
  Sender: FDA-Public Use
  Company Number: US-ASTRAZENECA-2010SE42122

PATIENT
  Age: 61 Year
  Sex: Female
  Weight: 73 kg

DRUGS (10)
  1. ONGLYZA [Suspect]
     Indication: DIABETES MELLITUS
     Dosage: 2.5 MG FOR 8 WEEKS PREVIOUSLY.
     Route: 048
     Dates: start: 20100301, end: 20100701
  2. ATENOLOL [Suspect]
     Route: 065
  3. PRAVACHOL [Suspect]
     Route: 065
  4. METFORMIN HCL [Suspect]
     Route: 065
  5. STARLIX [Suspect]
     Indication: DIABETES MELLITUS
     Route: 048
     Dates: end: 20100701
  6. BENICAR [Suspect]
     Route: 065
  7. ZETIA [Suspect]
     Route: 065
  8. MAVIK [Suspect]
     Route: 065
  9. GLYBURIDE [Suspect]
     Route: 065
  10. AMBIEN [Suspect]
     Route: 065

REACTIONS (1)
  - PANCREATITIS ACUTE [None]
